FAERS Safety Report 5962583-X (Version None)
Quarter: 2008Q4

REPORT INFORMATION
  Report Type: 
  Country: None (occurrence: None)
  Receive Date: 20081121
  Receipt Date: 20081110
  Transmission Date: 20090506
  Serious: Yes (Hospitalization)
  Sender: FDA-Public Use
  Company Number: JP-PFIZER INC-2008096026

PATIENT
  Age: 71 Year
  Sex: Female

DRUGS (2)
  1. CELECOX [Suspect]
     Indication: OSTEOARTHRITIS
     Dosage: DAILY DOSE:100MG
     Route: 048
     Dates: start: 20080712, end: 20080712
  2. GASLON [Concomitant]
     Dosage: DAILY DOSE:2MG
     Route: 048
     Dates: start: 20080712, end: 20080712

REACTIONS (1)
  - ACUTE GENERALISED EXANTHEMATOUS PUSTULOSIS [None]
